FAERS Safety Report 4676486-4 (Version None)
Quarter: 2005Q2

REPORT INFORMATION
  Report Type: 
  Country: None (occurrence: None)
  Receive Date: 20050527
  Receipt Date: 20050505
  Transmission Date: 20051028
  Serious: Yes (Life-Threatening, Disabling, Other)
  Sender: FDA-Public Use
  Company Number: US-MERCK-0505USA00674

PATIENT
  Age: 44 Year
  Sex: Male

DRUGS (2)
  1. CANCIDAS [Suspect]
     Indication: ORAL CANDIDIASIS
     Route: 042
  2. [THERAPY UNSPECIFIED] [Concomitant]
     Route: 065

REACTIONS (1)
  - PATHOGEN RESISTANCE [None]
